FAERS Safety Report 5010110-6 (Version None)
Quarter: 2006Q2

REPORT INFORMATION
  Report Type: 
  Country: None (occurrence: None)
  Receive Date: 20060523
  Receipt Date: 20060515
  Transmission Date: 20061013
  Serious: Yes (Hospitalization)
  Sender: FDA-Public Use
  Company Number: 0600265US

PATIENT
  Age: 18 Month
  Sex: Male
  Weight: 9.4 kg

DRUGS (1)
  1. BOTOX [Suspect]
     Indication: TALIPES
     Dosage: 94 UNITS
     Dates: start: 20050712, end: 20050712

REACTIONS (2)
  - MYELITIS TRANSVERSE [None]
  - NERVOUS SYSTEM DISORDER [None]
